FAERS Safety Report 5028569-7 (Version None)
Quarter: 2006Q2

REPORT INFORMATION
  Report Type: 
  Country: None (occurrence: None)
  Receive Date: 20060615
  Receipt Date: 20060615
  Transmission Date: 20061013
  Serious: Yes (Other)
  Sender: FDA-Public Use
  Company Number: None

PATIENT
  Age: 55 Year
  Sex: Male
  Weight: 86.1834 kg

DRUGS (1)
  1. SILDENAFIL CITRATE [Suspect]
     Indication: ERECTILE DYSFUNCTION
     Dosage: 100 MG PRN PO
     Route: 048
     Dates: start: 20060301, end: 20060423

REACTIONS (1)
  - PROSTATE CANCER [None]
